FAERS Safety Report 13785383 (Version 1)
Quarter: 2017Q3

REPORT INFORMATION
  Report Type: Spontaneous
  Country: US (occurrence: US)
  Receive Date: 20170725
  Receipt Date: 20170725
  Transmission Date: 20171127
  Serious: No
  Sender: FDA-Public Use
  Company Number: US-BIOGEN-2017BI00433444

PATIENT
  Sex: Female

DRUGS (1)
  1. AVONEX [Suspect]
     Active Substance: INTERFERON BETA-1A
     Indication: MULTIPLE SCLEROSIS
     Route: 065
     Dates: start: 20161013

REACTIONS (9)
  - Excoriation [Unknown]
  - Frustration tolerance decreased [Unknown]
  - Middle insomnia [Unknown]
  - Pruritus [Unknown]
  - Skin warm [Unknown]
  - Contusion [Unknown]
  - Insomnia [Unknown]
  - Rash [Unknown]
  - Urticaria [Unknown]
